FAERS Safety Report 12482300 (Version 1)
Quarter: 2016Q2

REPORT INFORMATION
  Report Type: Spontaneous
  Country: IT (occurrence: GB)
  Receive Date: 20160620
  Receipt Date: 20160620
  Transmission Date: 20160815
  Serious: Yes (Other)
  Sender: FDA-Public Use
  Company Number: GB-FRI-1000085406

PATIENT
  Age: 41 Year
  Sex: Male
  Weight: 49 kg

DRUGS (14)
  1. CARBOCISTEINE [Concomitant]
     Active Substance: CARBOCYSTEINE
     Dosage: 4 DF
     Dates: start: 20151019
  2. CORSODYL [Concomitant]
     Active Substance: CHLORHEXIDINE GLUCONATE
     Dosage: 2 DF
     Dates: start: 20160204
  3. DOXYCYCLINE. [Concomitant]
     Active Substance: DOXYCYCLINE
     Dates: start: 20160120
  4. FOSFOMYCIN [Suspect]
     Active Substance: FOSFOMYCIN
     Route: 065
     Dates: start: 20151218
  5. DICLOFENAC SODIUM. [Concomitant]
     Active Substance: DICLOFENAC SODIUM
     Dosage: 1 DF
     Dates: start: 20160204
  6. METOCLOPRAMIDE. [Concomitant]
     Active Substance: METOCLOPRAMIDE
     Dosage: 3 DF
     Dates: start: 20160120
  7. FOSTAIR [Concomitant]
     Active Substance: BECLOMETHASONE\FORMOTEROL
     Dosage: 4 DF
     Route: 055
     Dates: start: 20160204
  8. NOVORAPID [Concomitant]
     Active Substance: INSULIN ASPART
     Dates: start: 20160523
  9. HUMULIN I [Concomitant]
     Active Substance: INSULIN HUMAN
     Dates: start: 20160523
  10. IPRATROPIUM BROMIDE. [Concomitant]
     Active Substance: IPRATROPIUM BROMIDE
     Dosage: 3 DF
     Dates: start: 20160204
  11. OMEPRAZOLE. [Concomitant]
     Active Substance: OMEPRAZOLE
     Dosage: 2 DF
     Dates: start: 20160204
  12. PREDNISOLONE. [Concomitant]
     Active Substance: PREDNISOLONE
     Dosage: 1 DF
     Dates: start: 20160105
  13. VENTOLIN [Concomitant]
     Active Substance: ALBUTEROL SULFATE
     Dosage: 2 DF
     Route: 055
     Dates: start: 20160204
  14. VITAMINS A + D [Concomitant]
     Dosage: 2 DF
     Dates: start: 20160129

REACTIONS (1)
  - Malaise [Unknown]

NARRATIVE: CASE EVENT DATE: 20160525
